FAERS Safety Report 6432674-8 (Version None)
Quarter: 2009Q4

REPORT INFORMATION
  Report Type: 
  Country: None (occurrence: None)
  Receive Date: 20091109
  Receipt Date: 20091030
  Transmission Date: 20100525
  Serious: Yes (Death)
  Sender: FDA-Public Use
  Company Number: GXKR2009AR11983

PATIENT
  Age: 42 Year
  Sex: Female

DRUGS (4)
  1. METHYLPREDNISOLONE [Suspect]
     Indication: ORGAN TRANSPLANT
     Dosage: 20 MG/DAY
     Route: 065
  2. AZATHIOPRINE (NGX) [Suspect]
     Indication: ORGAN TRANSPLANT
     Dosage: 75 MG/DAY
     Route: 065
  3. TACROLIMUS [Suspect]
     Indication: ORGAN TRANSPLANT
     Dosage: 0.5 MG, BID
     Route: 065
  4. IMIPENEM [Concomitant]
     Indication: URINARY TRACT INFECTION
     Route: 065

REACTIONS (10)
  - DIARRHOEA [None]
  - DUODENITIS [None]
  - MECHANICAL VENTILATION [None]
  - NAUSEA [None]
  - PETECHIAE [None]
  - PURPURA [None]
  - PYREXIA [None]
  - RASH MACULO-PAPULAR [None]
  - STRONGYLOIDIASIS [None]
  - VOMITING [None]
